FAERS Safety Report 7713325-9 (Version None)
Quarter: 2011Q3

REPORT INFORMATION
  Report Type: 
  Country: None (occurrence: None)
  Receive Date: 20110826
  Receipt Date: 20110815
  Transmission Date: 20111222
  Serious: Yes (Death, Other)
  Sender: FDA-Public Use
  Company Number: US-JNJFOC-20110608983

PATIENT
  Sex: Male
  Weight: 130.18 kg

DRUGS (23)
  1. VASOTEC [Concomitant]
     Route: 048
     Dates: start: 20110322
  2. NEXIUM [Concomitant]
     Route: 048
     Dates: start: 20110322
  3. PERCOCET [Concomitant]
  4. CATAPRES [Concomitant]
     Route: 048
     Dates: start: 20110322
  5. NOVOLOG [Concomitant]
     Route: 058
     Dates: start: 20110322
  6. METHOTREXATE [Concomitant]
     Route: 048
  7. KLONOPIN [Concomitant]
  8. SYNTHROID [Concomitant]
     Route: 048
     Dates: start: 20110322
  9. NORVASC [Concomitant]
     Route: 048
     Dates: start: 20110322
  10. STELARA [Suspect]
     Route: 058
     Dates: start: 20110520
  11. PHENERGAN HCL [Concomitant]
     Route: 048
     Dates: start: 20110322
  12. SOMA [Concomitant]
  13. ZOCOR [Concomitant]
     Route: 048
     Dates: start: 20110322
  14. ZETIA [Concomitant]
     Route: 048
     Dates: start: 20110322
  15. AMBIEN [Concomitant]
     Route: 048
     Dates: start: 20110322
  16. STELARA [Suspect]
     Indication: PSORIASIS
     Route: 058
     Dates: start: 20110520
  17. STELARA [Suspect]
     Route: 058
     Dates: start: 20110517
  18. STELARA [Suspect]
     Route: 058
     Dates: start: 20110517
  19. HUMIRA [Concomitant]
     Route: 058
     Dates: start: 20110325
  20. LASIX [Concomitant]
     Route: 048
     Dates: start: 20110322
  21. XANAX [Concomitant]
  22. ADVAIR DISKUS 100/50 [Concomitant]
     Dates: start: 20110322
  23. CLOBETASOL PROPIONATE [Concomitant]
     Dates: start: 20110325

REACTIONS (8)
  - PANCYTOPENIA [None]
  - RENAL FAILURE ACUTE [None]
  - INAPPROPRIATE SCHEDULE OF DRUG ADMINISTRATION [None]
  - CARDIO-RESPIRATORY ARREST [None]
  - CELLULITIS [None]
  - SEPSIS [None]
  - RASH [None]
  - WEIGHT DECREASED [None]
